FAERS Safety Report 6269245-2 (Version None)
Quarter: 2009Q3

REPORT INFORMATION
  Report Type: 
  Country: None (occurrence: None)
  Receive Date: 20090715
  Receipt Date: 20090706
  Transmission Date: 20100115
  Serious: Yes (Other)
  Sender: FDA-Public Use
  Company Number: CA-ABBOTT-09P-028-0583804-00

PATIENT
  Sex: Male

DRUGS (9)
  1. LUPRON DEPOT [Suspect]
     Indication: PROSTATE CANCER
     Dates: start: 20060515, end: 20080115
  2. ALTACE [Concomitant]
     Indication: DRUG USE FOR UNKNOWN INDICATION
  3. HYDROCHLOROTHIAZIDE [Concomitant]
     Indication: DRUG USE FOR UNKNOWN INDICATION
     Dosage: ONE HALF IN THE MORNING
  4. TAMOXIFEN CITRATE [Concomitant]
     Indication: DRUG USE FOR UNKNOWN INDICATION
  5. ASAPHEN [Concomitant]
     Indication: DRUG USE FOR UNKNOWN INDICATION
  6. VOLTAREN [Concomitant]
     Indication: OSTEOARTHRITIS
     Dates: start: 20060801, end: 20090701
  7. CELEBREX [Concomitant]
     Indication: PAIN
  8. MORPHINE [Concomitant]
     Indication: SCIATICA
     Dosage: 5 MG
  9. MULTI-VITAMIN [Concomitant]
     Indication: DRUG USE FOR UNKNOWN INDICATION

REACTIONS (2)
  - BREAST MASS [None]
  - PROSTATIC SPECIFIC ANTIGEN INCREASED [None]
